FAERS Safety Report 6408290 (Version 4)
Quarter: 2013Q1

REPORT INFORMATION
  Report Type: Spontaneous
  Country: FR (occurrence: FR)
  Receive Date: 20070907
  Receipt Date: 20130320
  Transmission Date: 20140127
  Serious: Yes (Hospitalization)
  Sender: FDA-Public Use
  Company Number: FR-JNJFOC-20070806538

PATIENT
  Age: 24 Year
  Sex: Female

DRUGS (4)
  1. IBUPROFEN [Suspect]
     Indication: MALAISE
     Dosage: UNKNOWN
  2. PARACETAMOL [Concomitant]
  3. ALPRAZOLAM [Concomitant]
     Indication: DEPRESSION
  4. ESCITALOPRAM [Concomitant]
     Indication: DEPRESSION

REACTIONS (2)
  - Alveolitis allergic [Recovered/Resolved]
  - Acute respiratory failure [Recovered/Resolved]
